FAERS Safety Report 20032979 (Version 5)
Quarter: 2022Q2

REPORT INFORMATION
  Report Type: Spontaneous
  Country: US (occurrence: US)
  Receive Date: 20211104
  Receipt Date: 20220628
  Transmission Date: 20220721
  Serious: Yes (Other)
  Sender: FDA-Public Use
  Company Number: US-Blueprint Medicines Corporation-SP-US-2021-002001

PATIENT
  Age: 31 Year
  Sex: Female

DRUGS (6)
  1. AYVAKIT [Suspect]
     Active Substance: AVAPRITINIB
     Indication: Gastrointestinal stromal tumour
     Dosage: TAKE 1 TABLET BY MOUTH EVERY OTHER DAY. ALTERNATE WITH 300 MG DOSE
     Route: 048
     Dates: start: 20210929
  2. AYVAKIT [Suspect]
     Active Substance: AVAPRITINIB
     Dosage: TAKE 1 TABLET BY MOUTH EVERY OTHER DAY. ALTERNATE WITH 300 MG DOSE
     Route: 048
     Dates: start: 20210929
  3. AYVAKIT [Suspect]
     Active Substance: AVAPRITINIB
     Dosage: TAKE 1 TABLET BY MOUTH EVERY OTHER DAY. ALTERNATE WITH 300 MG DOSE
     Route: 048
     Dates: start: 20210901
  4. AYVAKIT [Suspect]
     Active Substance: AVAPRITINIB
     Dosage: TAKE 1 TABLET BY MOUTH EVERY OTHER DAY. ALTERNATE WITH 300 MG DOSE
     Route: 048
     Dates: start: 20210901
  5. AYVAKIT [Suspect]
     Active Substance: AVAPRITINIB
     Dosage: TAKE 1 TABLET BY MOUTH EVERY OTHER DAY. ALTERNATE WITH 300 MG DOSE
     Route: 048
     Dates: start: 20190901
  6. AYVAKIT [Suspect]
     Active Substance: AVAPRITINIB
     Dosage: TAKE 1 TABLET BY MOUTH EVERY OTHER DAY. ALTERNATE WITH 300 MG DOSE
     Route: 048
     Dates: start: 20190901

REACTIONS (22)
  - Crohn^s disease [Not Recovered/Not Resolved]
  - Intestinal obstruction [Unknown]
  - Neoplasm progression [Unknown]
  - Drug ineffective [Unknown]
  - Aphasia [Unknown]
  - Condition aggravated [Not Recovered/Not Resolved]
  - Amnesia [Unknown]
  - Diarrhoea [Unknown]
  - Constipation [Unknown]
  - Insomnia [Unknown]
  - Abdominal pain [Unknown]
  - Anxiety [Not Recovered/Not Resolved]
  - Fatigue [Not Recovered/Not Resolved]
  - Weight decreased [Unknown]
  - Non-cardiac chest pain [Unknown]
  - Stress [Not Recovered/Not Resolved]
  - Spinal pain [Unknown]
  - Intestinal obstruction [Unknown]
  - Functional gastrointestinal disorder [Unknown]
  - Off label use [Unknown]
  - Neoplasm progression [Unknown]
  - Illness [Not Recovered/Not Resolved]

NARRATIVE: CASE EVENT DATE: 20210929
